FAERS Safety Report 7138839-4 (Version None)
Quarter: 2010Q4

REPORT INFORMATION
  Report Type: 
  Country: None (occurrence: None)
  Receive Date: 20101206
  Receipt Date: 20101126
  Transmission Date: 20110411
  Serious: Yes (Other)
  Sender: FDA-Public Use
  Company Number: IT-EISAI INC.-E3810-04274-SPO-IT

PATIENT
  Age: 21 Year
  Sex: Female

DRUGS (3)
  1. PARIET (RABEPRAZOLE) [Suspect]
     Indication: ILL-DEFINED DISORDER
     Dosage: UNKNOWN
     Route: 048
  2. PENTACOL [Suspect]
     Indication: ILL-DEFINED DISORDER
  3. AUGMENTIN [Suspect]
     Indication: ILL-DEFINED DISORDER
     Dosage: 875MG / 125 MG

REACTIONS (2)
  - INTENTIONAL OVERDOSE [None]
  - SELF INJURIOUS BEHAVIOUR [None]
